FAERS Safety Report 7948522-0 (Version None)
Quarter: 2011Q4

REPORT INFORMATION
  Report Type: 
  Country: None (occurrence: None)
  Receive Date: 20111130
  Receipt Date: 20111116
  Transmission Date: 20120403
  Serious: Yes (Disabling)
  Sender: FDA-Public Use
  Company Number: JP-SANOFI-AVENTIS-2011SA071841

PATIENT
  Age: 83 Year
  Sex: Male
  Weight: 47 kg

DRUGS (1)
  1. LASIX [Suspect]
     Indication: DIURETIC THERAPY
     Route: 048

REACTIONS (1)
  - ANGIOEDEMA [None]
